FAERS Safety Report 9998817 (Version 1)
Quarter: 2014Q1

REPORT INFORMATION
  Report Type: Spontaneous
  Country: US (occurrence: US)
  Receive Date: 20140312
  Receipt Date: 20140312
  Transmission Date: 20141002
  Serious: No
  Sender: FDA-Public Use
  Company Number: US-BIOGENIDEC-2014BI020281

PATIENT
  Age: 55 Year
  Sex: Male

DRUGS (13)
  1. TECFIDERA [Suspect]
     Indication: MULTIPLE SCLEROSIS
     Route: 048
  2. ABILIFY [Concomitant]
  3. ALPRAZOLAM [Concomitant]
  4. AMANTADINE HCL [Concomitant]
  5. BACLOFEN [Concomitant]
  6. DIAZEPAM [Concomitant]
  7. EFFEXOR XR [Concomitant]
  8. HYDROCHLOROTHIAZIDE [Concomitant]
  9. LEVOTHYROXINE SODIUM [Concomitant]
  10. METOPROLOL TARTRATE [Concomitant]
  11. PROVIGIL [Concomitant]
  12. SIMVASTATIN [Concomitant]
  13. TESTOSTERONE CYPIONATE [Concomitant]

REACTIONS (1)
  - Insomnia [Unknown]
